FAERS Safety Report 16363254 (Version 1)
Quarter: 2019Q2

REPORT INFORMATION
  Report Type: Spontaneous
  Country: US (occurrence: US)
  Receive Date: 20190528
  Receipt Date: 20190528
  Transmission Date: 20190711
  Serious: Yes (Other)
  Sender: FDA-Public Use
  Company Number: US-IMPAX LABORATORIES, LLC-2019-IPXL-01029

PATIENT
  Age: 17 Year
  Sex: Female

DRUGS (2)
  1. NALOXONE [Suspect]
     Active Substance: NALOXONE
     Indication: SOMNOLENCE
     Dosage: 2 MILLIGRAM
     Route: 042
  2. CLONIDINE HYDROCHLORIDE. [Suspect]
     Active Substance: CLONIDINE HYDROCHLORIDE
     Indication: PRODUCT USED FOR UNKNOWN INDICATION
     Dosage: 160 TABLETS
     Route: 048

REACTIONS (7)
  - Left ventricular dysfunction [Unknown]
  - Hypertension [Unknown]
  - Overdose [Unknown]
  - Bradycardia [Unknown]
  - Pulmonary oedema [Unknown]
  - Hypotension [Unknown]
  - Mental status changes [Unknown]
